FAERS Safety Report 5908701-0 (Version None)
Quarter: 2008Q4

REPORT INFORMATION
  Report Type: 
  Country: None (occurrence: None)
  Receive Date: 20081006
  Receipt Date: 20080930
  Transmission Date: 20090506
  Serious: Yes (Other)
  Sender: FDA-Public Use
  Company Number: A0749826A

PATIENT
  Age: 70 Year
  Sex: Female

DRUGS (5)
  1. AVANDIA [Suspect]
     Dosage: 8MG PER DAY
     Route: 048
  2. METFORMIN HCL [Concomitant]
  3. LOTREL [Concomitant]
  4. ZIAC [Concomitant]
  5. SIMVASTATIN [Concomitant]

REACTIONS (1)
  - GLAUCOMA [None]
